FAERS Safety Report 5518920-3 (Version None)
Quarter: 2007Q4

REPORT INFORMATION
  Report Type: 
  Country: None (occurrence: None)
  Receive Date: 20071114
  Receipt Date: 20071114
  Transmission Date: 20080405
  Serious: No
  Sender: FDA-Public Use
  Company Number: None

PATIENT
  Age: 22 Year
  Sex: Female
  Weight: 61.6892 kg

DRUGS (4)
  1. DIVALPROEX SODIUM EXTENDED RELEASE [Suspect]
     Indication: BIPOLAR DISORDER
     Dosage: 1000MG DAILY PO
     Route: 048
     Dates: start: 20070824, end: 20070928
  2. SEROQUEL [Concomitant]
  3. IMITREX [Concomitant]
  4. NEURONTIN [Concomitant]

REACTIONS (1)
  - STEVENS-JOHNSON SYNDROME [None]
